FAERS Safety Report 15749533 (Version 1)
Quarter: 2018Q4

REPORT INFORMATION
  Report Type: Spontaneous
  Country: GB (occurrence: GB)
  Receive Date: 20181221
  Receipt Date: 20181221
  Transmission Date: 20190205
  Serious: Yes (Other)
  Sender: FDA-Public Use
  Company Number: GB-ACCORD-096602

PATIENT
  Age: 46 Year
  Sex: Male

DRUGS (2)
  1. ESOMEPRAZOLE/ESOMEPRAZOLE MAGNESIUM/ESOMEPRAZOLE SODIUM [Suspect]
     Active Substance: ESOMEPRAZOLE
     Indication: OESOPHAGITIS
     Dosage: MORNING
  2. QUETIAPINE/QUETIAPINE FUMARATE [Concomitant]
     Indication: INSOMNIA
     Dosage: AT NIGHT, STILL TAKING

REACTIONS (3)
  - Infection [Unknown]
  - Feeling abnormal [Unknown]
  - Bradyphrenia [Unknown]
